FAERS Safety Report 7277159-4 (Version None)
Quarter: 2011Q1

REPORT INFORMATION
  Report Type: 
  Country: None (occurrence: None)
  Receive Date: 20110202
  Receipt Date: 20110202
  Transmission Date: 20110831
  Serious: Yes (Hospitalization)
  Sender: FDA-Public Use
  Company Number: None

PATIENT
  Age: 64 Year
  Sex: Male

DRUGS (2)
  1. ADENOSINE [Suspect]
     Indication: CARDIAC STRESS TEST
     Dosage: 76.20 MG ONCE IV
     Route: 042
     Dates: start: 20101201, end: 20101201
  2. AMINOPHYLLINE [Suspect]
     Indication: BRONCHOSPASM
     Dosage: 125 MG ONCE IV
     Route: 042

REACTIONS (3)
  - SUPRAVENTRICULAR TACHYCARDIA [None]
  - BRONCHOSPASM [None]
  - ATRIAL FIBRILLATION [None]
